FAERS Safety Report 8529518-7 (Version None)
Quarter: 2012Q3

REPORT INFORMATION
  Report Type: 
  Country: None (occurrence: None)
  Receive Date: 20120723
  Receipt Date: 20120713
  Transmission Date: 20120928
  Serious: Yes (Other)
  Sender: FDA-Public Use
  Company Number: PT-JNJFOC-20120707681

PATIENT
  Age: 56 Year
  Sex: Female
  Weight: 96 kg

DRUGS (1)
  1. REMICADE [Suspect]
     Indication: RHEUMATOID ARTHRITIS
     Route: 042
     Dates: start: 20120628

REACTIONS (3)
  - INTRAOCULAR PRESSURE INCREASED [None]
  - FATIGUE [None]
  - HEADACHE [None]
